FAERS Safety Report 21064624 (Version 3)
Quarter: 2023Q4

REPORT INFORMATION
  Report Type: Report from Study
  Country: DE (occurrence: DE)
  Receive Date: 20220711
  Receipt Date: 20231117
  Transmission Date: 20240109
  Serious: Yes (Hospitalization, Other)
  Sender: FDA-Public Use
  Company Number: DE-PFM-2021-05939

PATIENT
  Age: 54 Year
  Sex: Female
  Weight: 55 kg

DRUGS (9)
  1. ENCORAFENIB [Suspect]
     Active Substance: ENCORAFENIB
     Indication: Malignant melanoma
     Dosage: 450 MG/ DAY, DISCONTINUED
     Route: 048
     Dates: start: 20210311, end: 20210626
  2. BINIMETINIB [Suspect]
     Active Substance: BINIMETINIB
     Indication: Malignant melanoma
     Dosage: 45 MG, BID (2/DAY)
     Route: 048
     Dates: start: 20210311, end: 20210626
  3. CIPROFLOXACIN [Concomitant]
     Active Substance: CIPROFLOXACIN
     Indication: Prophylaxis
     Dosage: UNK
     Route: 065
     Dates: start: 20210712, end: 20210712
  4. METROGEL [Concomitant]
     Active Substance: METRONIDAZOLE
     Indication: Prophylaxis
     Dosage: UNK
     Route: 065
     Dates: start: 20210718
  5. MINOCYCLINE HYDROCHLORIDE [Concomitant]
     Active Substance: MINOCYCLINE HYDROCHLORIDE
     Indication: Prophylaxis
     Dosage: UNK
     Route: 065
     Dates: start: 20210718
  6. ENOXAPARIN SODIUM [Concomitant]
     Active Substance: ENOXAPARIN SODIUM
     Indication: Prophylaxis
     Dosage: UNK
     Route: 065
     Dates: start: 20210616, end: 20210819
  7. COMIRNATY (TOZINAMERAN) [Concomitant]
     Active Substance: TOZINAMERAN
     Dosage: DOSE NUMBER UNKNOWN, SINGLE
     Route: 065
     Dates: start: 20210426, end: 20210426
  8. COMIRNATY (TOZINAMERAN) [Concomitant]
     Active Substance: TOZINAMERAN
     Dosage: DOSE NUMBER UNKNOWN, SINGLE
     Route: 065
     Dates: start: 20210405, end: 20210405
  9. ACETAMINOPHEN [Concomitant]
     Active Substance: ACETAMINOPHEN
     Indication: Surgery
     Dosage: UNK
     Route: 065
     Dates: start: 20210616, end: 20210713

REACTIONS (18)
  - Embolism [Recovered/Resolved]
  - Urinary tract obstruction [Recovered/Resolved]
  - Urinary tract infection [Recovered/Resolved]
  - Urinary tract obstruction [Recovered/Resolved]
  - Haemoglobinuria [Recovered/Resolved]
  - Embolism [Not Recovered/Not Resolved]
  - Rash maculo-papular [Recovered/Resolved]
  - Diarrhoea [Recovered/Resolved]
  - Alopecia [Recovered/Resolved]
  - C-reactive protein increased [Not Recovered/Not Resolved]
  - Lymphocyte count decreased [Recovered/Resolved]
  - Monocyte count decreased [Recovered/Resolved]
  - Blood lactate dehydrogenase increased [Not Recovered/Not Resolved]
  - Skin hypopigmentation [Not Recovered/Not Resolved]
  - Urinary tract infection [Recovered/Resolved]
  - Headache [Recovered/Resolved]
  - Myalgia [Recovered/Resolved]
  - Pruritus [Not Recovered/Not Resolved]

NARRATIVE: CASE EVENT DATE: 20210325
